FAERS Safety Report 24179981 (Version 1)
Quarter: 2024Q3

REPORT INFORMATION
  Report Type: Spontaneous
  Country: US (occurrence: None)
  Receive Date: 20240805
  Receipt Date: 20240805
  Transmission Date: 20241017
  Serious: Yes (Life-Threatening, Hospitalization)
  Sender: Public
  Company Number: None

PATIENT
  Age: 69 Year
  Sex: Female
  Weight: 80.9 kg

DRUGS (1)
  1. IRON DEXTRAN [Suspect]
     Active Substance: IRON DEXTRAN
     Indication: Iron deficiency anaemia
     Dosage: FREQUENCY : ONCE;?
     Route: 041
     Dates: start: 20240628, end: 20240628

REACTIONS (7)
  - Dyspnoea [None]
  - Feeling hot [None]
  - Chest discomfort [None]
  - Wheezing [None]
  - Stridor [None]
  - Dysphagia [None]
  - Infusion related reaction [None]

NARRATIVE: CASE EVENT DATE: 20240628
